FAERS Safety Report 13686157 (Version 1)
Quarter: 2017Q2

REPORT INFORMATION
  Report Type: Spontaneous
  Country: US (occurrence: US)
  Receive Date: 20170623
  Receipt Date: 20170623
  Transmission Date: 20170830
  Serious: No
  Sender: FDA-Public Use
  Company Number: US-ROCHE-1080636

PATIENT
  Age: 68 Year
  Sex: Female
  Weight: 64.5 kg

DRUGS (1)
  1. CELLCEPT [Suspect]
     Active Substance: MYCOPHENOLATE MOFETIL\MYCOPHENOLATE MOFETIL HYDROCHLORIDE
     Indication: GRAFT VERSUS HOST DISEASE
     Route: 040
     Dates: start: 20120620, end: 20120620

REACTIONS (1)
  - Extravasation [Recovered/Resolved]

NARRATIVE: CASE EVENT DATE: 20120620
